FAERS Safety Report 12860819 (Version 2)
Quarter: 2016Q4

REPORT INFORMATION
  Report Type: Spontaneous
  Country: JP (occurrence: JP)
  Receive Date: 20161019
  Receipt Date: 20161104
  Transmission Date: 20170207
  Serious: Yes (Other)
  Sender: FDA-Public Use
  Company Number: JP-009507513-1610JPN008218

PATIENT
  Age: 92 Year
  Sex: Female

DRUGS (8)
  1. ROZEREM [Interacting]
     Active Substance: RAMELTEON
     Indication: INSOMNIA
     Dosage: 8 MG ONCE A DAY
     Route: 048
     Dates: start: 20160328
  2. IRBETAN [Interacting]
     Active Substance: IRBESARTAN
     Indication: HYPERTENSION
     Dosage: 100 MG, DAILY
     Route: 048
     Dates: start: 20110502, end: 20160627
  3. EVISTA [Interacting]
     Active Substance: RALOXIFENE HYDROCHLORIDE
     Indication: PROPHYLAXIS
     Dosage: 60 MG ONCE A DAY
     Route: 048
     Dates: start: 20080117, end: 20160627
  4. BELSOMRA [Suspect]
     Active Substance: SUVOREXANT
     Indication: INSOMNIA
     Dosage: 15 MG ONCE A DAY
     Route: 048
     Dates: start: 20160427, end: 20160627
  5. MYSLEE [Interacting]
     Active Substance: ZOLPIDEM TARTRATE
     Indication: INSOMNIA
     Dosage: 5 MG ONCE A DAY
     Route: 048
     Dates: start: 20150821, end: 20160530
  6. SENNARIDE [Interacting]
     Active Substance: SENNOSIDES A AND B
     Indication: CONSTIPATION
     Dosage: 24 MG, DAILY
     Route: 048
     Dates: start: 20090924
  7. RIVASTACH [Interacting]
     Active Substance: RIVASTIGMINE
     Indication: DEMENTIA
     Dosage: 4.5 MG ONCE A DAY, FORMULATION: ^TAP^
     Route: 062
     Dates: start: 20141127, end: 20160627
  8. MYSLEE [Interacting]
     Active Substance: ZOLPIDEM TARTRATE
     Dosage: 10 MG ONCE A DAY
     Route: 048
     Dates: start: 20160531, end: 20160627

REACTIONS (2)
  - Pemphigoid [Not Recovered/Not Resolved]
  - Drug interaction [Unknown]

NARRATIVE: CASE EVENT DATE: 20160620
